FAERS Safety Report 5065579-8 (Version None)
Quarter: 2006Q3

REPORT INFORMATION
  Report Type: 
  Country: None (occurrence: None)
  Receive Date: 20060731
  Receipt Date: 20060602
  Transmission Date: 20061208
  Serious: Yes (Hospitalization)
  Sender: FDA-Public Use
  Company Number: ES-AMGEN-UK181940

PATIENT
  Sex: Male

DRUGS (36)
  1. PALIFERMIN [Suspect]
     Indication: MUCOSAL INFLAMMATION
     Route: 042
     Dates: start: 20060503, end: 20060510
  2. DIMETHYL SULFOXIDE [Suspect]
     Route: 065
  3. NEUPOGEN [Concomitant]
     Route: 065
     Dates: start: 20060510, end: 20060521
  4. OMEPRAZOLE [Concomitant]
     Route: 065
     Dates: start: 20060502, end: 20060530
  5. ORFIDAL [Concomitant]
     Dates: start: 20060502, end: 20060530
  6. ALLOPURINOL [Concomitant]
     Route: 065
     Dates: start: 20060502, end: 20060508
  7. SEPTRA [Concomitant]
     Route: 065
     Dates: start: 20060502, end: 20060508
  8. FLUCONAZOLE [Concomitant]
     Route: 065
     Dates: start: 20060502, end: 20060529
  9. ACYCLOVIR [Concomitant]
     Route: 065
     Dates: start: 20060502, end: 20060529
  10. URSOCHOL [Concomitant]
     Route: 065
     Dates: start: 20060502, end: 20060529
  11. CLEXANE [Concomitant]
     Route: 065
     Dates: start: 20060502, end: 20060522
  12. ESCITALOPRAM [Concomitant]
     Route: 065
     Dates: start: 20060502, end: 20060529
  13. ACFOL [Concomitant]
     Route: 065
     Dates: start: 20060502, end: 20060509
  14. DURAGESIC-100 [Concomitant]
     Route: 065
     Dates: start: 20060505, end: 20060515
  15. MYCOSTATIN [Concomitant]
     Route: 065
     Dates: start: 20060507, end: 20060509
  16. PRIMPERAN TAB [Concomitant]
     Route: 065
     Dates: start: 20060507, end: 20060507
  17. ONDANSETRON HCL [Concomitant]
     Route: 065
     Dates: start: 20060507, end: 20060529
  18. DUPHALAC [Concomitant]
     Route: 065
     Dates: start: 20060505, end: 20060507
  19. MELPHALAN [Concomitant]
     Route: 065
     Dates: start: 20060507, end: 20060508
  20. ACYCLOVIR [Concomitant]
     Route: 061
     Dates: start: 20060506, end: 20060509
  21. POLARAMINE [Concomitant]
     Route: 065
     Dates: start: 20060508, end: 20060509
  22. MERONEM [Concomitant]
     Route: 065
     Dates: start: 20060509, end: 20060522
  23. AMIODARONE HCL [Concomitant]
     Route: 065
     Dates: start: 20060511, end: 20060530
  24. TEICOPLANIN [Concomitant]
     Route: 065
     Dates: start: 20060511, end: 20060518
  25. PRIMPERAN TAB [Concomitant]
     Route: 065
     Dates: start: 20060514, end: 20060522
  26. FOLINIC ACID [Concomitant]
     Route: 065
     Dates: start: 20060515, end: 20060522
  27. AMIKACIN [Concomitant]
     Route: 065
     Dates: start: 20060518, end: 20060521
  28. CASPOFUNGIN [Concomitant]
     Route: 065
     Dates: start: 20060518, end: 20060529
  29. LINEZOLID [Concomitant]
     Route: 065
     Dates: start: 20060518, end: 20060529
  30. NOLOTIL /SPA/ [Concomitant]
     Route: 065
     Dates: start: 20060518, end: 20060518
  31. BISOPROLOL FUMARATE [Concomitant]
     Route: 065
     Dates: start: 20060523, end: 20060530
  32. ATROVENT [Concomitant]
     Route: 055
     Dates: start: 20060523, end: 20060524
  33. CIPROFLOXACIN [Concomitant]
     Route: 065
     Dates: start: 20060524, end: 20060524
  34. VITAMIN K [Concomitant]
     Route: 065
     Dates: start: 20060523, end: 20060528
  35. LORATADINE [Concomitant]
     Route: 065
     Dates: start: 20060507, end: 20060507
  36. PIPERACILLIN AND TAZOBACTAM [Concomitant]
     Route: 065
     Dates: start: 20060524, end: 20060529

REACTIONS (2)
  - ATRIAL FIBRILLATION [None]
  - CAPILLARY LEAK SYNDROME [None]
